FAERS Safety Report 5017497-9 (Version None)
Quarter: 2006Q2

REPORT INFORMATION
  Report Type: 
  Country: None (occurrence: None)
  Receive Date: 20060601
  Receipt Date: 20060601
  Transmission Date: 20061013
  Serious: Yes (Hospitalization)
  Sender: FDA-Public Use
  Company Number: None

PATIENT
  Sex: Male
  Weight: 57.1532 kg

DRUGS (2)
  1. ERBITUX [Suspect]
     Indication: NEOPLASM MALIGNANT
     Dosage: 430 MG/WEEK IV
     Route: 042
  2. ALIMTA [Suspect]
     Dosage: 602MG / 3 WEEKS IV
     Route: 042

REACTIONS (2)
  - DYSPHAGIA [None]
  - STOMATITIS [None]
